FAERS Safety Report 13420445 (Version 1)
Quarter: 2017Q2

REPORT INFORMATION
  Report Type: Spontaneous
  Country: US (occurrence: US)
  Receive Date: 20170407
  Receipt Date: 20170407
  Transmission Date: 20170830
  Serious: Yes (Other)
  Sender: FDA-Public Use
  Company Number: US-ASTELLAS-2017US012624

PATIENT
  Age: 44 Year
  Sex: Female

DRUGS (2)
  1. PROGRAF [Suspect]
     Active Substance: TACROLIMUS\TACROLIMUS ANHYDROUS
     Indication: LIVER TRANSPLANT
     Dosage: 15 MG, ONCE DAILY (8MG AT NIGHT AND 7MG IN THE MORNING )
     Route: 065
  2. PREDNISONE. [Concomitant]
     Active Substance: PREDNISONE
     Indication: PRODUCT USED FOR UNKNOWN INDICATION
     Dosage: UNK UNK, UNKNOWN FREQ.
     Route: 065

REACTIONS (10)
  - Weight increased [Unknown]
  - Hypoaesthesia [Unknown]
  - Swelling [Unknown]
  - Abdominal cavity drainage [Unknown]
  - Eye operation [Unknown]
  - Tremor [Unknown]
  - Blood creatinine abnormal [Unknown]
  - Paraesthesia [Unknown]
  - Intentional overdose [Unknown]
  - Breast pain [Unknown]
